FAERS Safety Report 4959135-7 (Version None)
Quarter: 2006Q1

REPORT INFORMATION
  Report Type: 
  Country: None (occurrence: None)
  Receive Date: 20060127
  Receipt Date: 20050308
  Transmission Date: 20060701
  Serious: Yes (Life-Threatening, Hospitalization, Other)
  Sender: FDA-Public Use
  Company Number: 05-03-0363

PATIENT
  Age: 55 Year
  Sex: Female
  Weight: 84.369 kg

DRUGS (6)
  1. CLOZAPINE [Suspect]
     Indication: PSYCHOTIC DISORDER
     Dosage: 300MG QD, ORAL
     Route: 048
     Dates: start: 20050127, end: 20050303
  2. SEROQUEL [Concomitant]
     Indication: BIPOLAR DISORDER
  3. SEROQUEL [Concomitant]
     Indication: SCHIZOAFFECTIVE DISORDER
  4. ZYPREXA [Concomitant]
  5. TRAZODONE HCL [Concomitant]
  6. BENZTROPINE MESYLATE [Concomitant]

REACTIONS (1)
  - NEUTROPENIA [None]
